FAERS Safety Report 8803752 (Version 1)
Quarter: 2012Q4

REPORT INFORMATION
  Report Type: 
  Country: CA (occurrence: CA)
  Receive Date: 20120924
  Receipt Date: 20120924
  Transmission Date: 20130627
  Serious: Yes (Other)
  Sender: FDA-Public Use
  Company Number: CA-JNJFOC-20120906518

PATIENT
  Sex: Male

DRUGS (4)
  1. REMICADE [Suspect]
     Indication: CROHN^S DISEASE
     Route: 042
  2. PURINETHOL [Concomitant]
     Route: 065
  3. PURINETHOL [Concomitant]
     Dosage: stopped since 04-SEP-year unspecified.
     Route: 065
     Dates: start: 200908
  4. B12 [Concomitant]
     Route: 065

REACTIONS (1)
  - Squamous cell carcinoma [Unknown]
